FAERS Safety Report 8976937 (Version 1)
Quarter: 2012Q4

REPORT INFORMATION
  Report Type: 
  Country: US (occurrence: US)
  Receive Date: 20121220
  Receipt Date: 20121220
  Transmission Date: 20130627
  Serious: Yes (Other)
  Sender: FDA-Public Use
  Company Number: US-ASTRAZENECA-2012SE92884

PATIENT
  Age: 72 Year
  Sex: Male
  Weight: 81.6 kg

DRUGS (7)
  1. NEXIUM [Suspect]
     Indication: GASTROOESOPHAGEAL REFLUX DISEASE
     Route: 048
  2. NEXIUM [Suspect]
     Indication: HIATUS HERNIA
     Route: 048
  3. RADIATION THERAPY [Suspect]
     Indication: PROSTATE CANCER
  4. ASPIRIN [Concomitant]
     Route: 048
     Dates: start: 2010
  5. MULTIVITAMIN [Concomitant]
     Dosage: UNKNONW DOSE DAILY
     Route: 048
  6. FEXOFENADINE [Concomitant]
     Indication: MULTIPLE ALLERGIES
     Route: 048
  7. AZOR [Concomitant]
     Indication: HYPERTENSION
     Dosage: 10/40 DAILY

REACTIONS (4)
  - Prostate cancer [Recovered/Resolved]
  - Bone pain [Not Recovered/Not Resolved]
  - Hiccups [Not Recovered/Not Resolved]
  - Arthralgia [Not Recovered/Not Resolved]
